FAERS Safety Report 10583691 (Version 2)
Quarter: 2014Q4

REPORT INFORMATION
  Report Type: Spontaneous
  Country: FR (occurrence: None)
  Receive Date: 20141112
  Receipt Date: 20141202
  Transmission Date: 20150529
  Serious: Yes (Other)
  Sender: FDA-Public Use
  Company Number: 2014-FR-005495

PATIENT
  Age: 52 Year
  Sex: Male
  Weight: 95 kg

DRUGS (4)
  1. XYREM [Suspect]
     Active Substance: SODIUM OXYBATE
     Indication: CATAPLEXY
     Route: 048
     Dates: start: 20140326, end: 20140411
  2. MODIODAL (MODAFINIL) [Concomitant]
  3. ANAFRANIL [Concomitant]
     Active Substance: CLOMIPRAMINE HYDROCHLORIDE
  4. XYREM [Suspect]
     Active Substance: SODIUM OXYBATE
     Indication: NARCOLEPSY
     Route: 048
     Dates: start: 20140326, end: 20140411

REACTIONS (9)
  - Flatulence [None]
  - Nausea [None]
  - Muscle spasms [None]
  - Migraine [None]
  - Vertigo [None]
  - Palpitations [None]
  - Fatigue [None]
  - Osteonecrosis [None]
  - Headache [None]

NARRATIVE: CASE EVENT DATE: 20140326
